FAERS Safety Report 7422143-0 (Version None)
Quarter: 2011Q2

REPORT INFORMATION
  Report Type: 
  Country: None (occurrence: None)
  Receive Date: 20110418
  Receipt Date: 20110407
  Transmission Date: 20111010
  Serious: Yes (Hospitalization, Other)
  Sender: FDA-Public Use
  Company Number: US-CEPHALON-2010001128

PATIENT
  Sex: Male
  Weight: 126 kg

DRUGS (21)
  1. TERAZOSIN [Concomitant]
     Route: 048
     Dates: start: 20090201
  2. ADVAIR DISKUS 100/50 [Concomitant]
     Indication: EMPHYSEMA
     Dates: start: 20090801
  3. ISOSORBIDE DINITRATE [Concomitant]
     Route: 048
     Dates: start: 20090201
  4. NITROGLYCERIN [Concomitant]
     Indication: ANGINA UNSTABLE
     Route: 060
     Dates: start: 20090101
  5. BUFFERIN [Concomitant]
     Indication: ANTICOAGULANT THERAPY
     Route: 048
  6. MIRAPEX [Concomitant]
     Indication: RESTLESS LEGS SYNDROME
     Dates: start: 20090101
  7. VENTOLIN [Concomitant]
     Dates: start: 20090901
  8. PROVIGIL [Suspect]
     Indication: SLEEP APNOEA SYNDROME
     Route: 048
     Dates: start: 20090801
  9. DICLOFENAC [Concomitant]
     Route: 048
     Dates: start: 20090201
  10. NORCO [Concomitant]
     Indication: ARTHRITIS
     Route: 048
  11. METOPROLOL [Concomitant]
     Route: 048
     Dates: start: 20100101
  12. PROVIGIL [Suspect]
     Route: 048
     Dates: start: 20100216
  13. LISINOPRIL AND HYDROCHLOROTHIAZIDE [Concomitant]
     Route: 048
     Dates: start: 20090201
  14. ACIPHEX [Concomitant]
     Indication: GASTROOESOPHAGEAL REFLUX DISEASE
     Route: 048
     Dates: start: 20100101
  15. CYCLOBENZAPRINE [Concomitant]
     Indication: MUSCLE RELAXANT THERAPY
     Route: 048
     Dates: start: 20090201
  16. TRILIPIX [Concomitant]
     Indication: BLOOD TRIGLYCERIDES INCREASED
     Route: 048
     Dates: start: 20091101
  17. FUROSEMIDE [Concomitant]
     Route: 048
     Dates: start: 20090201
  18. PLAVIX [Concomitant]
     Indication: ANTICOAGULANT THERAPY
     Route: 048
     Dates: start: 20090201
  19. KLOR-CON [Concomitant]
     Route: 048
     Dates: start: 20090201
  20. CLONAZEPAM [Concomitant]
     Indication: ESSENTIAL TREMOR
     Route: 048
     Dates: start: 20080201
  21. LOVASTATIN [Concomitant]
     Indication: BLOOD CHOLESTEROL INCREASED
     Route: 048
     Dates: start: 20090201

REACTIONS (10)
  - PNEUMONIA [None]
  - THINKING ABNORMAL [None]
  - PHOTOPSIA [None]
  - RESTLESSNESS [None]
  - NERVOUSNESS [None]
  - INSOMNIA [None]
  - TREMOR [None]
  - SPEECH DISORDER [None]
  - OVERDOSE [None]
  - CONFUSIONAL STATE [None]
